FAERS Safety Report 10606611 (Version 1)
Quarter: 2014Q4

REPORT INFORMATION
  Report Type: Spontaneous
  Country: US (occurrence: None)
  Receive Date: 20141124
  Receipt Date: 20141124
  Transmission Date: 20150529
  Serious: Yes (Other)
  Sender: FDA-Public Use
  Company Number: None

PATIENT
  Age: 29 Year
  Sex: Female
  Weight: 53.52 kg

DRUGS (1)
  1. CLOMIPHENE [Suspect]
     Active Substance: CLOMIPHENE
     Indication: INFERTILITY
     Dosage: 1/DAY FOR 5 DAYS
     Route: 048
     Dates: start: 20140723, end: 20140923

REACTIONS (2)
  - Dysmenorrhoea [None]
  - Ovarian cyst [None]

NARRATIVE: CASE EVENT DATE: 20141109
